FAERS Safety Report 9701610 (Version 2)
Quarter: 2013Q4

REPORT INFORMATION
  Report Type: Spontaneous
  Country: US (occurrence: US)
  Receive Date: 20131119
  Receipt Date: 20131119
  Transmission Date: 20140711
  Serious: No
  Sender: FDA-Public Use
  Company Number: US-ORACLE-2011S1000112

PATIENT
  Sex: Male

DRUGS (6)
  1. KRYSTEXXA INJECTION [Suspect]
     Indication: GOUT
     Dates: start: 2011
  2. CLARITIN /00917501/ [Concomitant]
     Indication: PREMEDICATION
     Dates: start: 2011
  3. HYDROCORTISONE [Concomitant]
     Indication: PREMEDICATION
     Dates: start: 2011
  4. PROGRAF [Concomitant]
     Indication: RENAL TRANSPLANT
  5. PREDNISONE [Concomitant]
     Indication: RENAL TRANSPLANT
  6. CELLCEPT /01275102/ [Concomitant]
     Indication: RENAL TRANSPLANT

REACTIONS (4)
  - Depression [Not Recovered/Not Resolved]
  - Affect lability [Not Recovered/Not Resolved]
  - Diarrhoea [Not Recovered/Not Resolved]
  - Pruritus [Not Recovered/Not Resolved]
